FAERS Safety Report 5922245-1 (Version None)
Quarter: 2008Q4

REPORT INFORMATION
  Report Type: 
  Country: None (occurrence: None)
  Receive Date: 20081017
  Receipt Date: 20081010
  Transmission Date: 20090506
  Serious: Yes (Other)
  Sender: FDA-Public Use
  Company Number: US-ELI_LILLY_AND_COMPANY-US200810002812

PATIENT
  Sex: Female

DRUGS (4)
  1. HUMALOG [Suspect]
     Indication: DIABETES MELLITUS
     Dates: start: 20040101
  2. HUMULIN N [Suspect]
     Indication: DIABETES MELLITUS
     Dates: start: 20040101
  3. LOSARTAN [Concomitant]
     Indication: HYPERTENSION
     Dosage: 25 MG, UNK
  4. LOSARTAN [Concomitant]
     Dosage: 100 MG, UNK
     Dates: start: 20080619

REACTIONS (11)
  - BLOOD GLUCOSE FLUCTUATION [None]
  - BLOOD GLUCOSE INCREASED [None]
  - BLOOD PRESSURE INCREASED [None]
  - EYE DISORDER [None]
  - EYE HAEMORRHAGE [None]
  - HYPERSENSITIVITY [None]
  - INFECTION [None]
  - PAIN IN EXTREMITY [None]
  - RHINORRHOEA [None]
  - VISION BLURRED [None]
  - WRONG DRUG ADMINISTERED [None]
